FAERS Safety Report 9624713 (Version 3)
Quarter: 2014Q1

REPORT INFORMATION
  Report Type: Spontaneous
  Country: GB (occurrence: GB)
  Receive Date: 20131015
  Receipt Date: 20140127
  Transmission Date: 20141002
  Serious: Yes (Death)
  Sender: FDA-Public Use
  Company Number: CHNY2013GB000674

PATIENT
  Sex: 0

DRUGS (16)
  1. SCOPALAMINIE HYDROBROMIDE [Suspect]
     Indication: INCREASED UPPER AIRWAY SECRETION
     Dosage: UNK
     Dates: start: 20130124, end: 20130126
  2. SCOPALAMINIE HYDROBROMIDE [Suspect]
     Indication: OFF LABEL USE
     Dosage: 1 MG, UNK
     Route: 003
     Dates: start: 20130124, end: 20130126
  3. TRANDOLAPRIL [Concomitant]
     Dates: start: 20121017
  4. CO-CODAMOL [Concomitant]
     Dates: start: 20121022, end: 20121103
  5. CO-CODAMOL [Concomitant]
     Dosage: UNK
     Dates: start: 20121128, end: 20121210
  6. CO-CODAMOL [Concomitant]
     Dosage: UNK
     Dates: start: 20130109, end: 20130121
  7. CO-CODAMOL [Concomitant]
     Dates: start: 20121022, end: 20130121
  8. CITALOPRAM [Concomitant]
     Dates: start: 20121107, end: 20121205
  9. CITALOPRAM [Concomitant]
     Dosage: UNK
     Dates: start: 20130109
  10. MACROGOL [Concomitant]
     Dosage: UNK
     Dates: start: 20121107, end: 20121205
  11. MACROGOL [Concomitant]
     Dosage: UNK
     Dates: start: 20130109
  12. CEFALEXIN [Concomitant]
     Dates: start: 20121109, end: 20121115
  13. ERYTHROMYCIN ETHYLSUCCINATE [Concomitant]
     Dates: start: 20121113, end: 20121114
  14. METRONIDAZOLE [Concomitant]
     Dates: start: 20121121
  15. DOMPERIDONE [Concomitant]
     Dates: start: 20130121, end: 20130128
  16. CETRABEN [Concomitant]

REACTIONS (3)
  - Death [Fatal]
  - Agitation [Recovered/Resolved]
  - Hallucination [Recovered/Resolved]
